FAERS Safety Report 16458242 (Version 3)
Quarter: 2019Q3

REPORT INFORMATION
  Report Type: Spontaneous
  Country: US (occurrence: US)
  Receive Date: 20190620
  Receipt Date: 20190827
  Transmission Date: 20191004
  Serious: No
  Sender: FDA-Public Use
  Company Number: US-PFIZER INC-2019263196

PATIENT
  Age: 60 Year
  Sex: Female
  Weight: 81 kg

DRUGS (28)
  1. VITAMIN D3 [Concomitant]
     Active Substance: CHOLECALCIFEROL
     Dosage: 2000 IU, UNK
     Dates: start: 20040101
  2. SYNTHROID [Concomitant]
     Active Substance: LEVOTHYROXINE SODIUM
     Dosage: 25 UG, UNK
     Dates: start: 20070101
  3. HERCEPTIN [Concomitant]
     Active Substance: TRASTUZUMAB
     Dosage: 512 MG, CYCLIC (6 CYCLES))
  4. HERCEPTIN [Concomitant]
     Active Substance: TRASTUZUMAB
     Dosage: UNK, CYCLIC (11 CYCLES)
  5. ALBUTEROL HFA [Concomitant]
     Active Substance: ALBUTEROL SULFATE
     Dosage: 90 UG, UNK (INHALER)
     Dates: start: 20051223
  6. LEVOTHYROXIN [Concomitant]
     Active Substance: LEVOTHYROXINE
     Indication: HORMONE THERAPY
     Dosage: 25 UG, UNK
     Dates: start: 20070101
  7. SODIUM CHLORIDE. [Concomitant]
     Active Substance: SODIUM CHLORIDE
     Dosage: 0.65 %, UNK
     Route: 045
  8. DOCETAXEL. [Suspect]
     Active Substance: DOCETAXEL
     Indication: INVASIVE DUCTAL BREAST CARCINOMA
     Dosage: 144 MG, CYCLIC (06 CYCLES FOR EVERY THREE WEEKS)
     Dates: start: 20151208, end: 20160322
  9. QVAR [Concomitant]
     Active Substance: BECLOMETHASONE DIPROPIONATE
     Dosage: 90 UG, UNK
     Dates: end: 20160401
  10. PERJETA [Concomitant]
     Active Substance: PERTUZUMAB
     Indication: INVASIVE DUCTAL BREAST CARCINOMA
     Dosage: 420 MG, CYCLIC (06 CYCLES)
     Dates: start: 20151208
  11. PARAPLATIN [Concomitant]
     Active Substance: CARBOPLATIN
     Dosage: 850 MG, CYCLIC (6 CYCLES)
     Dates: end: 20160322
  12. ARIMIDEX [Concomitant]
     Active Substance: ANASTROZOLE
     Indication: INVASIVE DUCTAL BREAST CARCINOMA
     Dosage: 1 MG, 1X/DAY
     Dates: start: 20160818
  13. XYLOCAINE [Concomitant]
     Active Substance: LIDOCAINE HYDROCHLORIDE
     Dosage: 5 %, UNK
     Dates: start: 20160426
  14. B COMPLEX VITAMIN [Concomitant]
     Dosage: UNK
  15. SYNTHROID [Concomitant]
     Active Substance: LEVOTHYROXINE SODIUM
     Dosage: 75 UG, UNK
  16. PERJETA [Concomitant]
     Active Substance: PERTUZUMAB
     Dosage: 840 MG, CYCLIC (06 CYCLES)
     Dates: end: 20160322
  17. ZOFRAN [Concomitant]
     Active Substance: ONDANSETRON HYDROCHLORIDE
     Dosage: 8 MG, UNK
     Dates: start: 20151208
  18. ZOFRAN [Concomitant]
     Active Substance: ONDANSETRON HYDROCHLORIDE
     Dosage: 10 MG, UNK
     Dates: end: 20160426
  19. THERAGRAN-M [Concomitant]
     Active Substance: VITAMINS
     Dosage: UNK
  20. QVAR [Concomitant]
     Active Substance: BECLOMETHASONE DIPROPIONATE
     Dosage: 80 UG, UNK
     Dates: start: 20110729
  21. EMLA [Concomitant]
     Active Substance: LIDOCAINE\PRILOCAINE
     Dosage: UNK (2.5 TO 2.5 % OF CREAM)
     Dates: start: 20151208, end: 20160408
  22. VITAMIN C [Concomitant]
     Active Substance: ASCORBIC ACID
     Dosage: 500 MG, UNK
     Dates: start: 20040101
  23. ALBUTEROL HFA [Concomitant]
     Active Substance: ALBUTEROL SULFATE
     Dosage: 108 UG, UNK (INHALER)
     Dates: end: 20160401
  24. HERCEPTIN [Concomitant]
     Active Substance: TRASTUZUMAB
     Indication: INVASIVE DUCTAL BREAST CARCINOMA
     Dosage: 456 MG, CYCLIC (6 CYCLES)
     Dates: start: 20151208
  25. HERCEPTIN [Concomitant]
     Active Substance: TRASTUZUMAB
     Dosage: 683 MG, CYCLIC (6 CYCLES)
     Dates: end: 20161201
  26. PARAPLATIN [Concomitant]
     Active Substance: CARBOPLATIN
     Indication: INVASIVE DUCTAL BREAST CARCINOMA
     Dosage: 400 MG, CYCLIC (6 CYCLES)
     Dates: start: 20151208
  27. DECADRON [Concomitant]
     Active Substance: DEXAMETHASONE
     Dosage: 4 MG, UNK
     Dates: start: 20151207, end: 20160418
  28. COMPAZINE [Concomitant]
     Active Substance: PROCHLORPERAZINE MALEATE
     Dosage: 10 MG, UNK
     Dates: start: 20151208, end: 20160401

REACTIONS (5)
  - Madarosis [Not Recovered/Not Resolved]
  - Hair colour changes [Not Recovered/Not Resolved]
  - Alopecia [Not Recovered/Not Resolved]
  - Hair texture abnormal [Not Recovered/Not Resolved]
  - Hair disorder [Not Recovered/Not Resolved]

NARRATIVE: CASE EVENT DATE: 20160922
